FAERS Safety Report 9383570 (Version 1)
Quarter: 2013Q3

REPORT INFORMATION
  Report Type: Spontaneous
  Country: US (occurrence: US)
  Receive Date: 20130704
  Receipt Date: 20130704
  Transmission Date: 20140515
  Serious: No
  Sender: FDA-Public Use
  Company Number: US-PFIZER INC-2013196960

PATIENT
  Age: 76 Year
  Sex: Female
  Weight: 90.7 kg

DRUGS (6)
  1. TIKOSYN [Suspect]
     Indication: ATRIAL FIBRILLATION
     Dosage: 250 UG, 2X/DAY
     Dates: start: 201201
  2. AMLODIPINE [Concomitant]
     Indication: HYPERTENSION
     Dosage: 5 MG, DAILY
  3. NEBIVOLOL [Concomitant]
     Indication: HYPERTENSION
     Dosage: 5 MG, DAILY
  4. FUROSEMIDE [Concomitant]
     Indication: HYPERTENSION
     Dosage: 40 MG, DAILY
  5. CRESTOR [Concomitant]
     Indication: BLOOD CHOLESTEROL INCREASED
     Dosage: 5 MG, DAILY
  6. WARFARIN [Concomitant]
     Indication: ANTICOAGULANT THERAPY
     Dosage: 3 MG, DAILY

REACTIONS (1)
  - Fungal infection [Not Recovered/Not Resolved]
